FAERS Safety Report 8805967 (Version 1)
Quarter: 2012Q4

REPORT INFORMATION
  Report Type: 
  Country: CA (occurrence: None)
  Receive Date: 20120918
  Receipt Date: 20120918
  Transmission Date: 20130627
  Serious: Yes (Other)
  Sender: FDA-Public Use
  Company Number: FK201202591

PATIENT
  Age: 46 Year
  Sex: Male

DRUGS (9)
  1. DEXAMETHASONE [Suspect]
     Indication: PRODUCT USED FOR UNKNOWN INDICATION
     Route: 048
  2. DEXAMETHASONE [Suspect]
     Indication: PRODUCT USED FOR UNKNOWN INDICATION
     Route: 048
  3. DEXAMETHASONE [Suspect]
     Indication: PRODUCT USED FOR UNKNOWN INDICATION
     Route: 048
  4. DEXAMETHASONE [Suspect]
     Indication: PRODUCT USED FOR UNKNOWN INDICATION
     Dosage: Day 14
     Route: 048
  5. DEXAMETHASONE [Suspect]
     Indication: PRODUCT USED FOR UNKNOWN INDICATION
     Dosage: 12 mg, daily, oral; taper down: 2 mg every 3 days, oral, 4 mg, delayed cycle 3: daily, oral

Date: 01NovUnknown
     Route: 048
  6. TEMOZOLOMIDE [Suspect]
     Indication: RADIOTHERAPY
     Dosage: 6June unknown
  7. TEMOZOLOMIDE [Suspect]
     Indication: RADIOTHERAPY
     Dosage: cycle 1: Days 1-5 every 28 days,
  8. TEMOZOLOMIDE [Suspect]
     Indication: RADIOTHERAPY
     Dosage: cycle 2: Days 1-5 every 28 days
  9. TEMOZOLOMIDE [Suspect]
     Indication: RADIOTHERAPY
     Dosage: delayed cycle 3,

REACTIONS (11)
  - Non-alcoholic steatohepatitis [None]
  - Confusional state [None]
  - Aphasia [None]
  - Headache [None]
  - Cognitive disorder [None]
  - Motor dysfunction [None]
  - Myopathy [None]
  - Myopathy [None]
  - Hyperglycaemia [None]
  - Hepatic fibrosis [None]
  - Fatigue [None]
